FAERS Safety Report 10154559 (Version 1)
Quarter: 2014Q2

REPORT INFORMATION
  Report Type: Spontaneous
  Country: US (occurrence: None)
  Receive Date: 20140505
  Receipt Date: 20140505
  Transmission Date: 20141212
  Serious: Yes (Hospitalization)
  Sender: FDA-Public Use
  Company Number: None

PATIENT
  Age: 45 Year
  Sex: Female

DRUGS (13)
  1. KETOROLAC [Suspect]
     Indication: PAIN
     Route: 042
     Dates: start: 20121203, end: 20121203
  2. ALPRAZOLAM [Concomitant]
  3. BUPROPION [Concomitant]
  4. ESCITALOPRAM [Concomitant]
  5. INSULIN GLARGINE [Concomitant]
  6. IRON [Concomitant]
  7. LEVOTHYROXINE [Concomitant]
  8. LISINOPRIL [Concomitant]
  9. METFORMIN [Concomitant]
  10. OMEPRAZOLE [Concomitant]
  11. PERCOCET [Concomitant]
  12. RISPERDAL [Concomitant]
  13. SIMVASTATIN [Concomitant]

REACTIONS (2)
  - Hypotension [None]
  - Varices oesophageal [None]
